FAERS Safety Report 21044611 (Version 1)
Quarter: 2022Q3

REPORT INFORMATION
  Report Type: Spontaneous
  Country: DE (occurrence: DE)
  Receive Date: 20220705
  Receipt Date: 20220705
  Transmission Date: 20221027
  Serious: Yes (Other)
  Sender: FDA-Public Use
  Company Number: DE-NOVARTISPH-NVSC2022DE152194

PATIENT
  Age: 75 Year
  Sex: Male

DRUGS (5)
  1. FLUVASTATIN [Suspect]
     Active Substance: FLUVASTATIN SODIUM
     Indication: Transient ischaemic attack
     Dosage: 40 MG, QD
     Route: 065
     Dates: start: 2014
  2. FLUVASTATIN [Suspect]
     Active Substance: FLUVASTATIN SODIUM
     Dosage: 20 MG
     Route: 065
  3. RAMIPRIL [Concomitant]
     Active Substance: RAMIPRIL
     Indication: Hypertension
     Dosage: UNK
     Route: 065
  4. PROPRANOLOL [Concomitant]
     Active Substance: PROPRANOLOL HYDROCHLORIDE
     Indication: Essential tremor
     Dosage: UNK
     Route: 065
  5. NILOTINIB [Concomitant]
     Active Substance: NILOTINIB
     Indication: Chronic myeloid leukaemia
     Dosage: UNK
     Route: 065

REACTIONS (2)
  - Carotid artery stenosis [Not Recovered/Not Resolved]
  - Therapeutic response unexpected [Unknown]

NARRATIVE: CASE EVENT DATE: 20180101
